FAERS Safety Report 6899305-4 (Version None)
Quarter: 2010Q3

REPORT INFORMATION
  Report Type: 
  Country: None (occurrence: None)
  Receive Date: 20100802
  Receipt Date: 20090217
  Transmission Date: 20110219
  Serious: No
  Sender: FDA-Public Use
  Company Number: US-PFIZER INC-2007047844

PATIENT
  Sex: Female
  Weight: 79 kg

DRUGS (5)
  1. LYRICA [Suspect]
     Indication: HERPES ZOSTER
     Dosage: 75 MG, 2X/DAY
     Dates: start: 20070413
  2. LYRICA [Suspect]
     Indication: FIBROMYALGIA
  3. CONTRACEPTIVE, UNSPECIFIED [Concomitant]
     Dosage: UNK
  4. MICROGESTIN 1.5/30 [Concomitant]
     Dosage: UNK
  5. XANAX [Concomitant]
     Dosage: UNK

REACTIONS (5)
  - ALOPECIA [None]
  - FIBROMYALGIA [None]
  - HYPERSENSITIVITY [None]
  - PAIN [None]
  - RASH [None]
